FAERS Safety Report 8167423 (Version 5)
Quarter: 2014Q4

REPORT INFORMATION
  Report Type: Spontaneous
  Country: US (occurrence: US)
  Receive Date: 20111004
  Receipt Date: 20141201
  Transmission Date: 20150529
  Serious: Yes (Hospitalization, Other)
  Sender: FDA-Public Use
  Company Number: US-BAYER-2011-090626

PATIENT
  Age: 37 Year
  Sex: Female
  Weight: 88.44 kg

DRUGS (28)
  1. SINGULAIR [Concomitant]
     Active Substance: MONTELUKAST SODIUM
     Indication: MULTIPLE ALLERGIES
     Dosage: UNK
  2. ALBUTEROL. [Concomitant]
     Active Substance: ALBUTEROL
     Dosage: 2 PUFF(S), PRN
     Route: 045
     Dates: start: 20040222, end: 20090810
  3. FLONASE [Concomitant]
     Active Substance: FLUTICASONE PROPIONATE
     Dosage: 0.05 PUFF(S), QD
     Route: 045
     Dates: start: 20050823, end: 20100204
  4. DARVOCET-N 100 [Concomitant]
     Active Substance: ACETAMINOPHEN\PROPOXYPHENE NAPSYLATE
     Dosage: 1 DF, QID PRN
     Route: 048
     Dates: start: 20090410, end: 20100204
  5. MONTELUKAST [Concomitant]
     Active Substance: MONTELUKAST SODIUM
  6. CLARITIN [Concomitant]
     Active Substance: LORATADINE
     Indication: MULTIPLE ALLERGIES
     Dosage: UNK
     Dates: start: 2006, end: 2011
  7. CLARITIN [Concomitant]
     Active Substance: LORATADINE
     Indication: MULTIPLE ALLERGIES
  8. VITAMIN C [Concomitant]
     Active Substance: ASCORBIC ACID
     Dosage: UNK
     Dates: start: 20090731
  9. AMITRIPTYLINE [Concomitant]
     Active Substance: AMITRIPTYLINE
  10. ATROVENT [Concomitant]
     Active Substance: IPRATROPIUM BROMIDE
  11. YAZ [Suspect]
     Active Substance: DROSPIRENONE\ETHINYL ESTRADIOL
     Indication: PREMENSTRUAL DYSPHORIC DISORDER
     Dosage: 1 TABLET PER DAY
     Dates: start: 200907, end: 200908
  12. EFFEXOR [Concomitant]
     Active Substance: VENLAFAXINE HYDROCHLORIDE
     Indication: DEPRESSION
     Dosage: UNK
     Dates: start: 2005
  13. SINGULAIR [Concomitant]
     Active Substance: MONTELUKAST SODIUM
     Indication: MULTIPLE ALLERGIES
     Dosage: UNK
     Dates: start: 2006, end: 2011
  14. ACIDOPHILUS [Concomitant]
     Active Substance: LACTOBACILLUS ACIDOPHILUS
     Dosage: UNK
     Dates: start: 20090731
  15. KEFLEX [Concomitant]
     Active Substance: CEPHALEXIN
  16. ELAVIL [Concomitant]
     Active Substance: AMITRIPTYLINE HYDROCHLORIDE
     Indication: DEPRESSION
     Dosage: UNK
     Dates: start: 2006, end: 2011
  17. TYLENOL ALLERGY SINUS [Concomitant]
     Active Substance: ACETAMINOPHEN\CHLORPHENIRAMINE MALEATE\PHENYLEPHRINE HYDROCHLORIDE
     Dosage: UNK
     Dates: start: 20090731
  18. FLUTICASONE [Concomitant]
     Active Substance: FLUTICASONE\FLUTICASONE PROPIONATE
  19. MIDRIN [Concomitant]
     Active Substance: ACETAMINOPHEN\DICHLORALPHENAZONE\ISOMETHEPTENE
     Dosage: UNK
     Dates: start: 2009
  20. MAXALT [Concomitant]
     Active Substance: RIZATRIPTAN BENZOATE
     Dosage: UNK
     Dates: start: 2009
  21. ZOMIG [Concomitant]
     Active Substance: ZOLMITRIPTAN
     Indication: HEADACHE
     Dosage: 1 DF, UNK
     Dates: start: 20050310, end: 20100204
  22. PAMPRIN [Concomitant]
     Active Substance: IBUPROFEN
     Dosage: UNK UNK, PRN
     Route: 048
     Dates: start: 20051025, end: 20100204
  23. LORATADINE. [Concomitant]
     Active Substance: LORATADINE
  24. YAZ [Suspect]
     Active Substance: DROSPIRENONE\ETHINYL ESTRADIOL
     Indication: MIGRAINE
  25. YAZ [Suspect]
     Active Substance: DROSPIRENONE\ETHINYL ESTRADIOL
     Indication: PREMENSTRUAL SYNDROME
  26. DURADRIN [Concomitant]
     Active Substance: ACETAMINOPHEN\DICHLORALPHENAZONE\ISOMETHEPTENE MUCATE
     Dosage: UNK
     Dates: start: 2009
  27. ECHINACEA [Concomitant]
     Active Substance: ECHINACEA, UNSPECIFIED
     Dosage: UNK
     Dates: start: 20090731
  28. PROMETHAZINE [Concomitant]
     Active Substance: PROMETHAZINE\PROMETHAZINE HYDROCHLORIDE

REACTIONS (13)
  - Psychological trauma [None]
  - Pulmonary embolism [Recovered/Resolved]
  - Pulmonary infarction [None]
  - Myocardial strain [None]
  - Depression [None]
  - Bipolar disorder [None]
  - Pulmonary embolism [Recovered/Resolved]
  - Emotional distress [None]
  - Mood swings [None]
  - Cholelithiasis [None]
  - Anxiety [None]
  - Cholecystitis chronic [None]
  - Pain [Recovered/Resolved]

NARRATIVE: CASE EVENT DATE: 200908
